FAERS Safety Report 9284950 (Version 1)
Quarter: 2013Q2

REPORT INFORMATION
  Report Type: Report from Study
  Country: GR (occurrence: GR)
  Receive Date: 20130513
  Receipt Date: 20130513
  Transmission Date: 20140414
  Serious: Yes (Other)
  Sender: FDA-Public Use
  Company Number: PHHY2013GR046328

PATIENT
  Age: 82 Year
  Sex: Male

DRUGS (2)
  1. STALEVO [Suspect]
     Indication: PARKINSON^S DISEASE
     Dosage: 100X3, UNK
  2. STALEVO [Suspect]
     Dosage: 150X4, UNK

REACTIONS (6)
  - Fall [Unknown]
  - Orthostatic hypotension [Unknown]
  - General physical health deterioration [Unknown]
  - Incorrect dose administered [Unknown]
  - Inappropriate schedule of drug administration [Unknown]
  - Treatment noncompliance [None]
